FAERS Safety Report 9915203 (Version 2)
Quarter: 2014Q1

REPORT INFORMATION
  Report Type: Spontaneous
  Country: US (occurrence: US)
  Receive Date: 20140220
  Receipt Date: 20140328
  Transmission Date: 20141002
  Serious: Yes (Other)
  Sender: FDA-Public Use
  Company Number: DE-ASTRAZENECA-2014SE12010

PATIENT
  Age: 65 Year
  Sex: Female

DRUGS (1)
  1. VIMOVO [Suspect]
     Indication: PRODUCT USED FOR UNKNOWN INDICATION
     Dosage: 500/20, DAILY
     Route: 048
     Dates: start: 20120419

REACTIONS (1)
  - Gastrointestinal haemorrhage [Recovered/Resolved]
